FAERS Safety Report 7973246-3 (Version None)
Quarter: 2011Q4

REPORT INFORMATION
  Report Type: 
  Country: None (occurrence: None)
  Receive Date: 20111213
  Receipt Date: 20111202
  Transmission Date: 20120403
  Serious: Yes (Death)
  Sender: FDA-Public Use
  Company Number: PHHY2011CA104529

PATIENT
  Sex: Female

DRUGS (4)
  1. SANDOSTATIN LAR [Suspect]
     Indication: LARGE INTESTINE CARCINOMA
     Dosage: 30 MG, EVERY 4 WEEKS
     Route: 030
     Dates: start: 20111109
  2. METOCLOPRAMIDE [Concomitant]
     Dosage: 10 MG, Q6H
  3. DECADRON [Concomitant]
     Dosage: 4 MG, TID
  4. NEXIUM [Concomitant]
     Dosage: 40 MG, DAILY

REACTIONS (1)
  - INTESTINAL OBSTRUCTION [None]
